FAERS Safety Report 19303807 (Version 4)
Quarter: 2021Q2

REPORT INFORMATION
  Report Type: Spontaneous
  Country: US (occurrence: US)
  Receive Date: 20210525
  Receipt Date: 20210604
  Transmission Date: 20210717
  Serious: Yes (Hospitalization)
  Sender: FDA-Public Use
  Company Number: US-CELGENEUS-USA-20210504890

PATIENT
  Age: 20 Year
  Sex: Male

DRUGS (12)
  1. VENETOCLAX. [Suspect]
     Active Substance: VENETOCLAX
     Indication: NEOPLASM MALIGNANT
     Dosage: 100 MILLIGRAM
     Route: 048
     Dates: start: 20201201, end: 20201201
  2. ACYCLOVIR. [Concomitant]
     Active Substance: ACYCLOVIR
     Indication: CYTOMEGALOVIRUS INFECTION
     Dosage: 800 MILLIGRAM
     Route: 048
     Dates: start: 20210226
  3. FLUCONAZOLE. [Concomitant]
     Active Substance: FLUCONAZOLE
     Indication: PNEUMONIA FUNGAL
     Dosage: 400 MILLIGRAM
     Route: 048
     Dates: start: 20201125
  4. PENTAMIDINE [Concomitant]
     Active Substance: PENTAMIDINE
     Indication: INFECTION PROPHYLAXIS
     Dosage: .3333 MILLIGRAM
     Route: 041
     Dates: start: 20210304
  5. MELATONIN [Concomitant]
     Active Substance: MELATONIN
     Indication: INSOMNIA
     Dosage: 6 MILLIGRAM
     Route: 048
     Dates: start: 20210319
  6. VENETOCLAX. [Suspect]
     Active Substance: VENETOCLAX
     Dosage: 400 MILLIGRAM
     Route: 048
     Dates: start: 20201203, end: 20210504
  7. DECITABINE. [Suspect]
     Active Substance: DECITABINE
     Dosage: 20 MILLIGRAM/SQ. METER
     Route: 041
     Dates: start: 20210216, end: 20210218
  8. VENETOCLAX. [Suspect]
     Active Substance: VENETOCLAX
     Dosage: 200 MILLIGRAM
     Route: 048
     Dates: start: 20201202, end: 20201202
  9. DECITABINE. [Suspect]
     Active Substance: DECITABINE
     Dosage: 20 MILLIGRAM/SQ. METER
     Route: 041
     Dates: end: 20210424
  10. TYLENOL [Concomitant]
     Active Substance: ACETAMINOPHEN
     Indication: PAIN
     Dosage: 2600 MILLIGRAM
     Route: 048
     Dates: start: 20210319
  11. AZACITIDINE. [Suspect]
     Active Substance: AZACITIDINE
     Indication: NEOPLASM MALIGNANT
     Route: 041
     Dates: start: 20201204, end: 20201209
  12. DECITABINE. [Suspect]
     Active Substance: DECITABINE
     Indication: NEOPLASM MALIGNANT
     Dosage: 20 MILLIGRAM/SQ. METER
     Route: 041
     Dates: start: 20210112, end: 20210116

REACTIONS (3)
  - Soft tissue infection [Not Recovered/Not Resolved]
  - Bacteraemia [Not Recovered/Not Resolved]
  - Febrile neutropenia [Not Recovered/Not Resolved]

NARRATIVE: CASE EVENT DATE: 20210508
